FAERS Safety Report 14410121 (Version 2)
Quarter: 2018Q1

REPORT INFORMATION
  Report Type: Spontaneous
  Country: US (occurrence: US)
  Receive Date: 20180119
  Receipt Date: 20180123
  Transmission Date: 20180509
  Serious: No
  Sender: FDA-Public Use
  Company Number: US-PFIZER INC-2018024346

PATIENT
  Age: 53 Year
  Sex: Female
  Weight: 53.98 kg

DRUGS (1)
  1. ADVIL [Suspect]
     Active Substance: IBUPROFEN
     Indication: PAIN
     Dosage: 200 MG AS NEEDED, COULD HAVE BEEN ONE OR TWO
     Dates: start: 201801, end: 201801

REACTIONS (3)
  - Nervousness [Unknown]
  - Headache [Unknown]
  - Dyspepsia [Recovered/Resolved]

NARRATIVE: CASE EVENT DATE: 201801
